FAERS Safety Report 23679285 (Version 1)
Quarter: 2024Q1

REPORT INFORMATION
  Report Type: Spontaneous
  Country: US (occurrence: None)
  Receive Date: 20240326
  Receipt Date: 20240326
  Transmission Date: 20240410
  Serious: Yes (Hospitalization)
  Sender: FDA-Public Use
  Company Number: None

PATIENT
  Age: 86 Year
  Sex: Female

DRUGS (1)
  1. XARELTO [Suspect]
     Active Substance: RIVAROXABAN
     Dosage: FREQUENCY : DAILY;?
     Route: 048

REACTIONS (3)
  - Contusion [None]
  - Contusion [None]
  - Contusion [None]

NARRATIVE: CASE EVENT DATE: 20231119
